FAERS Safety Report 5004343-2 (Version None)
Quarter: 2006Q2

REPORT INFORMATION
  Report Type: 
  Country: None (occurrence: None)
  Receive Date: 20060517
  Receipt Date: 20060512
  Transmission Date: 20061013
  Serious: Yes (Other)
  Sender: FDA-Public Use
  Company Number: US-GLAXOSMITHKLINE-A0605432A

PATIENT
  Sex: Male

DRUGS (1)
  1. WELLBUTRIN [Suspect]
     Indication: ANXIETY
     Route: 048

REACTIONS (6)
  - APHASIA [None]
  - CARPAL TUNNEL SYNDROME [None]
  - HEART RATE INCREASED [None]
  - HYPOAESTHESIA [None]
  - PANIC ATTACK [None]
  - UNEVALUABLE EVENT [None]
